FAERS Safety Report 9460691 (Version 1)
Quarter: 2013Q3

REPORT INFORMATION
  Report Type: Spontaneous
  Country: GB (occurrence: None)
  Receive Date: 20130813
  Receipt Date: 20130813
  Transmission Date: 20140515
  Serious: Yes (Hospitalization)
  Sender: FDA-Public Use
  Company Number: AUR-APL-2013-06488

PATIENT
  Age: 78 Year
  Sex: Female

DRUGS (10)
  1. RAMIPRIL [Suspect]
     Indication: PRODUCT USED FOR UNKNOWN INDICATION
     Dosage: 1.25 MG (1.25 MG, 1 IN 1 D), ORAL
     Route: 048
     Dates: start: 2011, end: 20130717
  2. GABAPENTIN [Suspect]
     Dosage: 300 MG (100 MG, 3 IN 1 D), ORAL
     Route: 048
     Dates: start: 20130624, end: 20130717
  3. FUROSEMIDE [Suspect]
     Route: 048
     Dates: start: 2008, end: 20130717
  4. CITALOPRAM (CITALOPRAM) [Concomitant]
  5. DIGOXIN (DIGOXIN) [Concomitant]
  6. HYPROMELLOSE (HYPROMELLOSE) [Concomitant]
  7. LANSOPRAZOLE (LANSOPRAZOLE) [Concomitant]
  8. SIMVASTATIN (SIMVASTATIN) [Concomitant]
  9. TEMAZEPAM (TEMAZEPAM) [Concomitant]
  10. WARFARIN (WARFARIN) [Concomitant]

REACTIONS (10)
  - Neuralgia [None]
  - Dehydration [None]
  - Infection [None]
  - Renal failure acute [None]
  - Somnolence [None]
  - Hypophagia [None]
  - Toxicity to various agents [None]
  - Urosepsis [None]
  - Sepsis [None]
  - International normalised ratio increased [None]
